FAERS Safety Report 4375831-7 (Version None)
Quarter: 2004Q2

REPORT INFORMATION
  Report Type: 
  Country: None (occurrence: None)
  Receive Date: 20040607
  Receipt Date: 20040521
  Transmission Date: 20050107
  Serious: Yes (Death, Hospitalization)
  Sender: FDA-Public Use
  Company Number: MPS1-10204

PATIENT
  Age: 19 Year
  Sex: Female
  Weight: 44 kg

DRUGS (5)
  1. ALDURAZYME [Suspect]
     Indication: MUCOPOLYSACCHARIDOSIS I
     Dosage: 4500 UNITS QWK IV
     Route: 042
     Dates: start: 20020619, end: 20040403
  2. VASOCARDIN [Concomitant]
  3. TENORMIN [Concomitant]
  4. FURON [Concomitant]
  5. KCL TAB [Concomitant]

REACTIONS (10)
  - CERVICAL MYELOPATHY [None]
  - CERVICAL SPINAL STENOSIS [None]
  - COMA [None]
  - DISEASE PROGRESSION [None]
  - GENERAL PHYSICAL HEALTH DETERIORATION [None]
  - HAEMORRHAGE INTRACRANIAL [None]
  - HYDROCEPHALUS [None]
  - INTRACRANIAL PRESSURE INCREASED [None]
  - POST PROCEDURAL COMPLICATION [None]
  - VENTRICULOPERITONEAL SHUNT MALFUNCTION [None]
